FAERS Safety Report 7903397-0 (Version None)
Quarter: 2011Q4

REPORT INFORMATION
  Report Type: 
  Country: None (occurrence: None)
  Receive Date: 20111109
  Receipt Date: 20111027
  Transmission Date: 20120403
  Serious: Yes (Hospitalization)
  Sender: FDA-Public Use
  Company Number: US-AMGEN-USASP2011009111

PATIENT
  Age: 78 Year
  Sex: Female

DRUGS (2)
  1. ENBREL [Suspect]
     Indication: PSORIATIC ARTHROPATHY
     Dosage: 50 MG, Q2WK
     Dates: start: 20100601, end: 20111006
  2. METHOTREXATE [Concomitant]
     Dosage: UNK
     Dates: start: 20070101

REACTIONS (6)
  - VOCAL CORD DISORDER [None]
  - OXYGEN SATURATION DECREASED [None]
  - DYSPHONIA [None]
  - MOBILITY DECREASED [None]
  - HEPATIC ENZYME INCREASED [None]
  - PSORIASIS [None]
